FAERS Safety Report 11243926 (Version 2)
Quarter: 2015Q3

REPORT INFORMATION
  Report Type: Spontaneous
  Country: FR (occurrence: FR)
  Receive Date: 20150707
  Receipt Date: 20150724
  Transmission Date: 20151125
  Serious: Yes (Life-Threatening)
  Sender: FDA-Public Use
  Company Number: FR-PFIZER INC-2015220285

PATIENT
  Age: 77 Year
  Sex: Female

DRUGS (6)
  1. TERBUTALINE ARROW [Concomitant]
     Active Substance: TERBUTALINE
     Dosage: 1 DF, 3X/DAY
     Route: 055
     Dates: start: 20150302, end: 20150305
  2. TAZOCILLINE [Suspect]
     Active Substance: PIPERACILLIN SODIUM\TAZOBACTAM SODIUM
     Indication: NECROTISING FASCIITIS
     Dosage: 1 DF, 3X/DAY
     Route: 042
     Dates: start: 20150224, end: 20150306
  3. DALACINE [Suspect]
     Active Substance: CLINDAMYCIN HYDROCHLORIDE
     Indication: NECROTISING FASCIITIS
     Dosage: 600 MG, 3X/DAY
     Route: 048
     Dates: start: 20150224, end: 20150305
  4. LOVENOX [Concomitant]
     Active Substance: ENOXAPARIN SODIUM
     Indication: THROMBOSIS PROPHYLAXIS
     Dosage: 1 DF, DAILY
     Route: 058
     Dates: start: 20150302
  5. PARACETAMOL ARROW [Concomitant]
     Active Substance: ACETAMINOPHEN
     Indication: NECROTISING FASCIITIS
     Dosage: 4 DF, AS NEEDED
     Route: 048
     Dates: start: 20150224, end: 20150325
  6. GENTAMICIN SULFATE. [Suspect]
     Active Substance: GENTAMICIN SULFATE
     Indication: NECROTISING FASCIITIS
     Dosage: 180 MG, 1X/DAY
     Route: 048
     Dates: start: 20150304, end: 20150305

REACTIONS (3)
  - Epistaxis [Recovered/Resolved]
  - Thrombocytopenia [Recovered/Resolved]
  - Mouth haemorrhage [Recovered/Resolved]

NARRATIVE: CASE EVENT DATE: 20150304
